FAERS Safety Report 8495671-7 (Version None)
Quarter: 2012Q3

REPORT INFORMATION
  Report Type: 
  Country: None (occurrence: None)
  Receive Date: 20120709
  Receipt Date: 20120705
  Transmission Date: 20120928
  Serious: No
  Sender: FDA-Public Use
  Company Number: US-PFIZER INC-2012162654

PATIENT
  Sex: Female
  Weight: 111 kg

DRUGS (1)
  1. MORPHINE SULFATE [Suspect]
     Indication: PAIN IN EXTREMITY
     Dosage: UNK
     Dates: start: 19940101

REACTIONS (2)
  - RASH [None]
  - AGITATION [None]
